FAERS Safety Report 14827888 (Version 2)
Quarter: 2018Q2

REPORT INFORMATION
  Report Type: Spontaneous
  Country: CA (occurrence: CA)
  Receive Date: 20180430
  Receipt Date: 20180503
  Transmission Date: 20180711
  Serious: Yes (Hospitalization, Other)
  Sender: FDA-Public Use
  Company Number: CA-ROCHE-2110529

PATIENT
  Age: 3 Year
  Sex: Female

DRUGS (17)
  1. IMMUNE GLOBULIN [Suspect]
     Active Substance: HUMAN IMMUNOGLOBULIN G
     Indication: JUVENILE IDIOPATHIC ARTHRITIS
     Route: 042
  2. TRIAMCINOLONE [Suspect]
     Active Substance: TRIAMCINOLONE
     Indication: JUVENILE IDIOPATHIC ARTHRITIS
     Route: 050
  3. ANAKINRA [Suspect]
     Active Substance: ANAKINRA
     Indication: JUVENILE IDIOPATHIC ARTHRITIS
     Route: 058
  4. ENBREL [Suspect]
     Active Substance: ETANERCEPT
     Indication: JUVENILE IDIOPATHIC ARTHRITIS
     Route: 065
  5. SULFASALAZINE. [Suspect]
     Active Substance: SULFASALAZINE
     Indication: JUVENILE IDIOPATHIC ARTHRITIS
     Route: 048
  6. ACTEMRA [Suspect]
     Active Substance: TOCILIZUMAB
     Indication: JUVENILE IDIOPATHIC ARTHRITIS
     Route: 042
  7. ACTEMRA [Suspect]
     Active Substance: TOCILIZUMAB
     Dosage: THERAPY DURATION:  6.0 MONTH(S)
     Route: 042
  8. NAPROXEN. [Suspect]
     Active Substance: NAPROXEN
     Indication: JUVENILE IDIOPATHIC ARTHRITIS
     Route: 065
  9. HYDROXYCHLOROQUINE [Suspect]
     Active Substance: HYDROXYCHLOROQUINE
     Indication: JUVENILE IDIOPATHIC ARTHRITIS
     Route: 048
  10. PREDNISONE. [Suspect]
     Active Substance: PREDNISONE
     Route: 065
  11. PREDNISONE. [Suspect]
     Active Substance: PREDNISONE
     Indication: JUVENILE IDIOPATHIC ARTHRITIS
     Route: 048
  12. ANAKINRA [Suspect]
     Active Substance: ANAKINRA
     Route: 065
  13. HUMIRA [Suspect]
     Active Substance: ADALIMUMAB
     Indication: JUVENILE IDIOPATHIC ARTHRITIS
     Dosage: THERAPY DUARATION: 3MONTHS
     Route: 058
  14. INFLIXIMAB [Suspect]
     Active Substance: INFLIXIMAB
     Indication: JUVENILE IDIOPATHIC ARTHRITIS
     Route: 042
  15. METHOTREXATE. [Suspect]
     Active Substance: METHOTREXATE
     Indication: JUVENILE IDIOPATHIC ARTHRITIS
     Route: 058
  16. ORENCIA [Suspect]
     Active Substance: ABATACEPT
     Indication: JUVENILE IDIOPATHIC ARTHRITIS
     Route: 042
  17. TRIAMCINOLONE HEXACETONIDE [Concomitant]
     Active Substance: TRIAMCINOLONE HEXACETONIDE
     Indication: JUVENILE IDIOPATHIC ARTHRITIS
     Route: 065

REACTIONS (22)
  - Arthropathy [Unknown]
  - Body height below normal [Unknown]
  - Mobility decreased [Unknown]
  - Adrenal insufficiency [Not Recovered/Not Resolved]
  - Septic shock [Unknown]
  - Nausea [Unknown]
  - Bone density decreased [Unknown]
  - Polyarthritis [Unknown]
  - Vomiting [Unknown]
  - C-reactive protein increased [Unknown]
  - Drug ineffective [Unknown]
  - Human antichimeric antibody positive [Unknown]
  - Obesity [Unknown]
  - Diarrhoea [Unknown]
  - Dizziness [Unknown]
  - Drug intolerance [Unknown]
  - Red blood cell sedimentation rate increased [Unknown]
  - Synovitis [Unknown]
  - Condition aggravated [Unknown]
  - Drug specific antibody [Unknown]
  - Juvenile idiopathic arthritis [Unknown]
  - Psoriasis [Unknown]
